FAERS Safety Report 9441576 (Version 1)
Quarter: 2013Q3

REPORT INFORMATION
  Report Type: Spontaneous
  Country: IT (occurrence: IT)
  Receive Date: 20130805
  Receipt Date: 20130805
  Transmission Date: 20140515
  Serious: Yes (Hospitalization, Other)
  Sender: FDA-Public Use
  Company Number: IT-MERCK-1308ITA000494

PATIENT
  Age: 81 Year
  Sex: Female

DRUGS (2)
  1. SIMVASTATIN [Suspect]
     Route: 048
  2. CYCLOSPORINE [Suspect]
     Indication: PSORIASIS

REACTIONS (3)
  - Renal impairment [Unknown]
  - Drug interaction [Unknown]
  - Rhabdomyolysis [Unknown]
